FAERS Safety Report 7951363-1 (Version None)
Quarter: 2011Q4

REPORT INFORMATION
  Report Type: 
  Country: None (occurrence: None)
  Receive Date: 20111201
  Receipt Date: 20111108
  Transmission Date: 20120403
  Serious: No
  Sender: FDA-Public Use
  Company Number: US-BAYER-2011-108459

PATIENT
  Sex: Female

DRUGS (1)
  1. CLIMARA PRO [Suspect]
     Dosage: UNK
     Dates: start: 20110501

REACTIONS (4)
  - DRY SKIN [None]
  - ERYTHEMA [None]
  - APPLICATION SITE REACTION [None]
  - PRURITUS [None]
